FAERS Safety Report 13724600 (Version 1)
Quarter: 2017Q3

REPORT INFORMATION
  Report Type: Spontaneous
  Country: GB (occurrence: GB)
  Receive Date: 20170706
  Receipt Date: 20170706
  Transmission Date: 20171127
  Serious: Yes (Hospitalization)
  Sender: FDA-Public Use
  Company Number: GB-FRESENIUS KABI-FK201705773

PATIENT
  Age: 31 Year
  Sex: Female

DRUGS (1)
  1. VANCOMYCIN (MANUFACTURER UNKNOWN) [Suspect]
     Active Substance: VANCOMYCIN
     Indication: PRODUCT USED FOR UNKNOWN INDICATION
     Route: 065
     Dates: start: 20170320, end: 20170320

REACTIONS (9)
  - Lip swelling [Unknown]
  - Swelling face [Recovering/Resolving]
  - Swollen tongue [Unknown]
  - Incorrect drug administration duration [Unknown]
  - Hypotension [Unknown]
  - Red man syndrome [Unknown]
  - Oedema [Unknown]
  - Oxygen saturation decreased [Recovered/Resolved]
  - Tachycardia [Unknown]

NARRATIVE: CASE EVENT DATE: 20170320
